APPROVED DRUG PRODUCT: ANAPROX
Active Ingredient: NAPROXEN SODIUM
Strength: EQ 250MG BASE **Federal Register determination that product was not discontinued or withdrawn for safety or effectiveness reasons**
Dosage Form/Route: TABLET;ORAL
Application: N018164 | Product #001
Applicant: ATNAHS PHARMA US LTD
Approved: Approved Prior to Jan 1, 1982 | RLD: Yes | RS: No | Type: DISCN